FAERS Safety Report 5365362-X (Version None)
Quarter: 2007Q2

REPORT INFORMATION
  Report Type: 
  Country: None (occurrence: None)
  Receive Date: 20070621
  Receipt Date: 20070615
  Transmission Date: 20071010
  Serious: Yes (Hospitalization)
  Sender: FDA-Public Use
  Company Number: PHEH2007US08980

PATIENT
  Age: 87 Year
  Sex: Female
  Weight: 53.061 kg

DRUGS (1)
  1. TEKTURNA [Suspect]
     Route: 048
     Dates: start: 20070413, end: 20070601

REACTIONS (1)
  - JAUNDICE [None]
